FAERS Safety Report 7078418-0 (Version None)
Quarter: 2010Q4

REPORT INFORMATION
  Report Type: 
  Country: None (occurrence: None)
  Receive Date: 20101101
  Receipt Date: 20101101
  Transmission Date: 20110411
  Serious: No
  Sender: FDA-Public Use
  Company Number: None

PATIENT

DRUGS (2)
  1. VELCADE [Suspect]
     Indication: MULTIPLE MYELOMA
     Dosage: NOT PROVIDED
  2. REVLIMID [Suspect]
     Dosage: NOT PROVIDED

REACTIONS (2)
  - ADVERSE REACTION [None]
  - OVERDOSE [None]
